FAERS Safety Report 24074361 (Version 6)
Quarter: 2024Q4

REPORT INFORMATION
  Report Type: Spontaneous
  Country: US (occurrence: US)
  Receive Date: 20240710
  Receipt Date: 20241125
  Transmission Date: 20250115
  Serious: No
  Sender: SANOFI AVENTIS
  Company Number: US-SA-SAC20240709000622

PATIENT
  Age: 72 Year
  Sex: Male

DRUGS (3)
  1. DUPIXENT [Suspect]
     Active Substance: DUPILUMAB
     Indication: Dermatitis atopic
     Dosage: 600 MG, 1X
     Route: 058
     Dates: start: 20240321, end: 20240321
  2. DUPIXENT [Suspect]
     Active Substance: DUPILUMAB
     Dosage: 300 MG, QOW
     Route: 058
     Dates: start: 20240404
  3. WEGOVY [Suspect]
     Active Substance: SEMAGLUTIDE
     Dosage: UNK

REACTIONS (9)
  - Hyperaesthesia [Unknown]
  - Chills [Recovered/Resolved]
  - Injection site pain [Unknown]
  - Dermatitis atopic [Unknown]
  - Eyelids pruritus [Not Recovered/Not Resolved]
  - Therapeutic response shortened [Unknown]
  - Accidental exposure to product [Unknown]
  - Exposure via skin contact [Unknown]
  - Wrong technique in device usage process [Unknown]

NARRATIVE: CASE EVENT DATE: 20240101
